FAERS Safety Report 8019149-X (Version None)
Quarter: 2011Q4

REPORT INFORMATION
  Report Type: 
  Country: None (occurrence: None)
  Receive Date: 20111229
  Receipt Date: 20111213
  Transmission Date: 20120403
  Serious: Yes (Other)
  Sender: FDA-Public Use
  Company Number: 2011AP003043

PATIENT
  Age: 55 Year
  Sex: Female

DRUGS (5)
  1. AZELASTINE HYDROCHLORIDE [Suspect]
     Indication: RHINITIS
     Dosage: 548 UG, QD, INH
     Route: 055
     Dates: end: 20101225
  2. ESTRADIOL [Concomitant]
  3. LEVOTHYROXINE SODIUM [Concomitant]
  4. LISINOPRIL [Suspect]
     Indication: HYPERTENSION
     Dosage: 10 MG, QD, PO
     Route: 048
     Dates: start: 20070101, end: 20101225
  5. FLONASE [Concomitant]

REACTIONS (5)
  - SWELLING FACE [None]
  - LIP SWELLING [None]
  - DRUG INTERACTION [None]
  - PARAESTHESIA ORAL [None]
  - SWOLLEN TONGUE [None]
